FAERS Safety Report 13872425 (Version 3)
Quarter: 2017Q3

REPORT INFORMATION
  Report Type: Report from Study
  Country: US (occurrence: US)
  Receive Date: 20170816
  Receipt Date: 20170828
  Transmission Date: 20171127
  Serious: Yes (Death, Life-Threatening, Hospitalization, Other)
  Sender: FDA-Public Use
  Company Number: US-BRISTOL-MYERS SQUIBB COMPANY-BMS-2017-071726

PATIENT
  Age: 79 Year
  Sex: Female
  Weight: 46.26 kg

DRUGS (1)
  1. APIXABAN [Suspect]
     Active Substance: APIXABAN
     Indication: PULMONARY EMBOLISM
     Dosage: 5 MG, DAILY
     Route: 065
     Dates: start: 20170215

REACTIONS (11)
  - Respiratory failure [Unknown]
  - Aspiration [Unknown]
  - Troponin I increased [Unknown]
  - Tooth fracture [Unknown]
  - Mouth injury [Unknown]
  - Oesophageal obstruction [Unknown]
  - Lung infection [Unknown]
  - Chronic kidney disease [Unknown]
  - Death [Fatal]
  - Humerus fracture [Unknown]
  - Fall [Unknown]

NARRATIVE: CASE EVENT DATE: 20170725
